FAERS Safety Report 10162592 (Version 2)
Quarter: 2014Q2

REPORT INFORMATION
  Report Type: Report from Study
  Country: CA (occurrence: CA)
  Receive Date: 20140509
  Receipt Date: 20140509
  Transmission Date: 20141212
  Serious: Yes (Hospitalization, Other)
  Sender: FDA-Public Use
  Company Number: PHHY2014CA005178

PATIENT
  Age: 53 Year
  Sex: Male

DRUGS (4)
  1. SANDOSTATIN LAR [Suspect]
     Indication: PANCREATIC NEUROENDOCRINE TUMOUR
     Dosage: 30 MG, QMO
     Route: 030
     Dates: start: 20131216
  2. ANESTHETICS, GENERAL [Concomitant]
     Dosage: UNK UKN, UNK
  3. ANTIBIOTICS [Concomitant]
     Dosage: UNK UKN, UNK
     Route: 042
  4. CEFUROXIME [Concomitant]
     Indication: PROPHYLAXIS
     Dosage: 1 DF, BID, FOR 10 DAYS

REACTIONS (12)
  - Delayed recovery from anaesthesia [Unknown]
  - Dizziness [Recovered/Resolved]
  - Nausea [Recovered/Resolved]
  - Headache [Recovered/Resolved]
  - Blood calcium decreased [Recovered/Resolved]
  - Nephrolithiasis [Unknown]
  - Body temperature decreased [Unknown]
  - Blood pressure decreased [Unknown]
  - Infection [Unknown]
  - White blood cell count increased [Unknown]
  - Stoma site erythema [Unknown]
  - Fatigue [Unknown]
